FAERS Safety Report 12375481 (Version 2)
Quarter: 2016Q2

REPORT INFORMATION
  Report Type: Spontaneous
  Country: IT (occurrence: IT)
  Receive Date: 20160517
  Receipt Date: 20160524
  Transmission Date: 20160815
  Serious: Yes (Other)
  Sender: FDA-Public Use
  Company Number: IT-SA-2016SA092840

PATIENT
  Age: 39 Year
  Sex: Female
  Weight: 70 kg

DRUGS (1)
  1. FERLIXIT [Suspect]
     Active Substance: SODIUM FERRIC GLUCONATE COMPLEX
     Indication: ANAEMIA
     Dosage: FORM:SOLUTION FOR ORAL USE AND INTRAVENOUS USE DOSE:2 UNIT(S)
     Route: 042
     Dates: start: 20160426, end: 20160426

REACTIONS (5)
  - Abdominal pain [Recovered/Resolved]
  - Hyperhidrosis [Recovered/Resolved]
  - Circulatory collapse [Recovered/Resolved]
  - Urinary incontinence [Recovered/Resolved]
  - Vomiting [Recovered/Resolved]

NARRATIVE: CASE EVENT DATE: 20160426
